FAERS Safety Report 4765489-7 (Version None)
Quarter: 2005Q3

REPORT INFORMATION
  Report Type: 
  Country: None (occurrence: None)
  Receive Date: 20050908
  Receipt Date: 20050908
  Transmission Date: 20060218
  Serious: Yes (Life-Threatening)
  Sender: FDA-Public Use
  Company Number: None

PATIENT
  Age: 51 Year
  Sex: Male
  Weight: 90.7194 kg

DRUGS (1)
  1. CYMBALTA [Suspect]
     Indication: ANXIETY
     Dosage: 1 TABLET ONCE A DAY
     Dates: start: 20050818, end: 20050906

REACTIONS (6)
  - ANXIETY [None]
  - BLOOD PRESSURE DECREASED [None]
  - COLD SWEAT [None]
  - DRUG DOSE OMISSION [None]
  - FEELING ABNORMAL [None]
  - TREATMENT NONCOMPLIANCE [None]
